FAERS Safety Report 8865507 (Version 1)
Quarter: 2012Q4

REPORT INFORMATION
  Report Type: 
  Country: US (occurrence: US)
  Receive Date: 20121024
  Receipt Date: 20121024
  Transmission Date: 20130627
  Serious: Yes (Other)
  Sender: FDA-Public Use
  Company Number: US-AMGEN-USASP2012003637

PATIENT
  Age: 56 Year
  Sex: Female
  Weight: 68.02 kg

DRUGS (14)
  1. ENBREL [Suspect]
     Indication: PRODUCT USED FOR UNKNOWN INDICATION
     Dosage: 50 mg, qwk
     Route: 058
  2. METHOTREXATE [Concomitant]
     Dosage: 2.5 mg, UNK
  3. ATENOLOL [Concomitant]
     Dosage: 25 mg, UNK
  4. VALTREX [Concomitant]
     Dosage: 1 mg, UNK
  5. RESTASIS [Concomitant]
     Dosage: 0.05 %, UNK
  6. MULTIVITAMIN                       /00097801/ [Concomitant]
     Dosage: UNK
  7. CALCIUM 500+D [Concomitant]
     Dosage: UNK
  8. OMEGA 3                            /01334101/ [Concomitant]
     Dosage: 1200 mg, UNK
  9. NIACIN [Concomitant]
     Dosage: 125 mg, tid
  10. FOLIC ACID [Concomitant]
     Dosage: 1 mg, UNK
  11. GLUCOSAMINE W/CHONDROITIN          /01639101/ [Concomitant]
     Dosage: UNK
  12. SAM-E [Concomitant]
     Dosage: 200 mg, UNK
  13. ASA [Concomitant]
     Dosage: 81 mg, UNK
  14. MELATONIN [Concomitant]
     Dosage: 1 mg, UNK

REACTIONS (3)
  - Paraesthesia [Not Recovered/Not Resolved]
  - Pain [Not Recovered/Not Resolved]
  - Injection site bruising [Recovered/Resolved]
